FAERS Safety Report 19942466 (Version 2)
Quarter: 2021Q4

REPORT INFORMATION
  Report Type: Report from Study
  Country: CA (occurrence: CA)
  Receive Date: 20211011
  Receipt Date: 20211022
  Transmission Date: 20220303
  Serious: Yes (Death, Hospitalization)
  Sender: FDA-Public Use
  Company Number: CA-JNJFOC-20210837617

PATIENT
  Age: 69 Year
  Sex: Male

DRUGS (6)
  1. SIMPONI [Suspect]
     Active Substance: GOLIMUMAB
     Indication: Rheumatoid arthritis
     Route: 058
     Dates: start: 20200305, end: 20210727
  2. ZOPICLONE [Concomitant]
     Active Substance: ZOPICLONE
  3. PREDNISONE [Concomitant]
     Active Substance: PREDNISONE
  4. RABEPRAZOLE [Concomitant]
     Active Substance: RABEPRAZOLE
  5. CANDESARTAN [Concomitant]
     Active Substance: CANDESARTAN
  6. CELECOXIB [Concomitant]
     Active Substance: CELECOXIB

REACTIONS (3)
  - Pneumonia [Fatal]
  - Acute respiratory distress syndrome [Fatal]
  - Interstitial lung disease [Fatal]
